FAERS Safety Report 8968346 (Version 1)
Quarter: 2012Q4

REPORT INFORMATION
  Report Type: 
  Country: JP (occurrence: JP)
  Receive Date: 20121217
  Receipt Date: 20121217
  Transmission Date: 20130627
  Serious: Yes (Other)
  Sender: FDA-Public Use
  Company Number: JP-ASTRAZENECA-2012SE93608

PATIENT
  Age: 83 Year
  Sex: Female

DRUGS (5)
  1. SEROQUEL [Suspect]
     Indication: SCHIZOPHRENIA
     Route: 048
     Dates: start: 20121107
  2. MEMARY [Suspect]
     Route: 048
  3. GASMOTIN [Suspect]
     Route: 048
  4. UNSPECIFIED INGREDIENT [Suspect]
     Route: 048
  5. ALDACTONE [Concomitant]
     Route: 048

REACTIONS (1)
  - Drug eruption [Recovered/Resolved]
